FAERS Safety Report 7434465-8 (Version None)
Quarter: 2011Q2

REPORT INFORMATION
  Report Type: 
  Country: None (occurrence: None)
  Receive Date: 20110425
  Receipt Date: 20110413
  Transmission Date: 20111010
  Serious: Yes (Other)
  Sender: FDA-Public Use
  Company Number: IT-AMGEN-ITASP2011014119

PATIENT
  Age: 83 Year
  Sex: Male

DRUGS (11)
  1. LASIX [Concomitant]
  2. ARANESP [Suspect]
     Dosage: 30 IU, Q2WK
     Dates: start: 20090101
  3. LUVION [Concomitant]
  4. PRADIF [Concomitant]
  5. ARANESP [Suspect]
     Dosage: 30 A?G, QWK
     Route: 058
     Dates: start: 20101001
  6. LANOXIN [Concomitant]
  7. ZYLORIC [Concomitant]
  8. MINITRAN [Concomitant]
  9. ARANESP [Suspect]
     Indication: RENAL FAILURE CHRONIC
     Dosage: 60 A?G, QWK
     Route: 058
     Dates: start: 20110201, end: 20110310
  10. CARDICOR [Concomitant]
  11. DAPAROX [Concomitant]

REACTIONS (3)
  - RENAL FAILURE CHRONIC [None]
  - ANAEMIA [None]
  - APLASIA PURE RED CELL [None]
